FAERS Safety Report 9153577 (Version 1)
Quarter: 2013Q1

REPORT INFORMATION
  Report Type: Spontaneous
  Country: HR (occurrence: HR)
  Receive Date: 20130311
  Receipt Date: 20130311
  Transmission Date: 20140127
  Serious: Yes (Death, Other)
  Sender: FDA-Public Use
  Company Number: PHBS2006HR03159

PATIENT
  Age: 76 Year
  Sex: Male
  Weight: 70 kg

DRUGS (5)
  1. LESCOL XL [Suspect]
     Indication: HYPERCHOLESTEROLAEMIA
     Dosage: 80 MG, DAILY
     Route: 048
     Dates: start: 20051025, end: 20051214
  2. LACIPIL [Concomitant]
     Dosage: 4 MG, UNK
  3. LOSARTAN POTASSIUM W/HYDROCHLOROTHIAZIDE [Concomitant]
     Dosage: LOS 50 / HCT 12.5 MG
  4. CONCOR [Concomitant]
     Dosage: 5 MG, UNK
  5. LOSARTAN [Concomitant]
     Dosage: UNK UKN, UNK
     Dates: start: 20040419

REACTIONS (7)
  - Death [Fatal]
  - Hepatic enzyme increased [Recovered/Resolved]
  - Aspartate aminotransferase increased [Recovered/Resolved]
  - Alanine aminotransferase increased [Recovered/Resolved]
  - Blood bilirubin increased [Recovered/Resolved]
  - Gamma-glutamyltransferase increased [Recovered/Resolved]
  - Blood alkaline phosphatase increased [Recovered/Resolved]
